FAERS Safety Report 26035838 (Version 1)
Quarter: 2025Q4

REPORT INFORMATION
  Report Type: Spontaneous
  Country: US (occurrence: US)
  Receive Date: 20251112
  Receipt Date: 20251112
  Transmission Date: 20260117
  Serious: Yes (Other)
  Sender: PADAGIS
  Company Number: US-PADAGIS-2025PAD01426

PATIENT

DRUGS (2)
  1. BUDESONIDE [Suspect]
     Active Substance: BUDESONIDE
     Indication: Rectal haemorrhage
     Dosage: EVERY NIGHT
     Route: 065
  2. PEPCID [Concomitant]
     Active Substance: FAMOTIDINE
     Indication: Gastrooesophageal reflux disease
     Dosage: UNK
     Route: 065

REACTIONS (3)
  - Drug ineffective for unapproved indication [Unknown]
  - Application site pain [Unknown]
  - Product quality issue [Unknown]

NARRATIVE: CASE EVENT DATE: 20251001
